FAERS Safety Report 5927010-7 (Version None)
Quarter: 2008Q4

REPORT INFORMATION
  Report Type: 
  Country: None (occurrence: None)
  Receive Date: 20081021
  Receipt Date: 20081021
  Transmission Date: 20090506
  Serious: Yes (Life-Threatening)
  Sender: FDA-Public Use
  Company Number: None

PATIENT
  Sex: Male
  Weight: 91.7 kg

DRUGS (15)
  1. CANCIDAS [Suspect]
     Indication: FEBRILE NEUTROPENIA
     Dosage: 35 MG DAILY IV
     Route: 042
     Dates: start: 20080930, end: 20081005
  2. CANCIDAS [Suspect]
     Indication: SEPSIS
     Dosage: 35 MG DAILY IV
     Route: 042
     Dates: start: 20080930, end: 20081005
  3. MEPRON [Concomitant]
  4. VANCOMYCIN [Concomitant]
  5. IMIPENEM [Concomitant]
  6. METRONIDAZOLE [Concomitant]
  7. ACYLOVIR [Concomitant]
  8. CASOPFUNGIN [Concomitant]
  9. DOBUTAMINE HCL [Concomitant]
  10. NOREPINEPHRINE [Concomitant]
  11. VASOPRESSIN [Concomitant]
  12. NEUPOGEN [Concomitant]
  13. LORAZEPAM/PROPOFOL [Concomitant]
  14. FENTANYL [Concomitant]
  15. NEXIUM [Concomitant]

REACTIONS (1)
  - BLOOD BILIRUBIN INCREASED [None]
